FAERS Safety Report 7069340-4 (Version None)
Quarter: 2010Q4

REPORT INFORMATION
  Report Type: 
  Country: None (occurrence: None)
  Receive Date: 20101028
  Receipt Date: 20101012
  Transmission Date: 20110411
  Serious: Yes (Hospitalization, Other)
  Sender: FDA-Public Use
  Company Number: US-AMGEN INC.-KDL445145

PATIENT

DRUGS (1)
  1. ENBREL [Suspect]
     Indication: RHEUMATOID ARTHRITIS
     Dosage: 50 MG, QWK
     Route: 058
     Dates: start: 20080202

REACTIONS (5)
  - HERNIA [None]
  - INTESTINAL PERFORATION [None]
  - PRECANCEROUS CELLS PRESENT [None]
  - REVERSAL OF ILEOJEJUNAL BYPASS [None]
  - RHEUMATOID ARTHRITIS [None]
